FAERS Safety Report 6985683-4 (Version None)
Quarter: 2010Q3

REPORT INFORMATION
  Report Type: 
  Country: None (occurrence: None)
  Receive Date: 20100915
  Receipt Date: 20100908
  Transmission Date: 20110219
  Serious: Yes (Other)
  Sender: FDA-Public Use
  Company Number: US-JNJFOC-20100606346

PATIENT
  Age: 65 Year
  Sex: Male
  Weight: 79.38 kg

DRUGS (3)
  1. EXTRA STRENGTH TYLENOL [Suspect]
     Indication: PAIN
     Route: 048
  2. EXTRA STRENGTH TYLENOL [Suspect]
     Indication: HEADACHE
     Route: 048
  3. BENADRYL [Suspect]
     Indication: MULTIPLE ALLERGIES
     Dosage: 1-2 TIMES DAILY; MOST RECENTLY 2X DAILY
     Route: 048

REACTIONS (7)
  - COUGH [None]
  - DYSPNOEA [None]
  - EPISTAXIS [None]
  - HAEMOPTYSIS [None]
  - LUNG INFECTION [None]
  - PRODUCT ODOUR ABNORMAL [None]
  - SKIN INFECTION [None]
